FAERS Safety Report 4969166-9 (Version None)
Quarter: 2006Q2

REPORT INFORMATION
  Report Type: 
  Country: None (occurrence: None)
  Receive Date: 20060411
  Receipt Date: 20051103
  Transmission Date: 20061013
  Serious: No
  Sender: FDA-Public Use
  Company Number: US-BRISTOL-MYERS SQUIBB COMPANY-13170766

PATIENT
  Age: 73 Year
  Sex: Female

DRUGS (1)
  1. PARAPLATIN [Suspect]
     Route: 042

REACTIONS (6)
  - HEADACHE [None]
  - NAUSEA [None]
  - PARAESTHESIA [None]
  - PRURITUS [None]
  - SYNCOPE [None]
  - VOMITING [None]
